FAERS Safety Report 7382058-3 (Version None)
Quarter: 2011Q1

REPORT INFORMATION
  Report Type: 
  Country: None (occurrence: None)
  Receive Date: 20110329
  Receipt Date: 20101213
  Transmission Date: 20110831
  Serious: Yes (Hospitalization)
  Sender: FDA-Public Use
  Company Number: NL-BAYER-2010-002521

PATIENT
  Sex: Female

DRUGS (1)
  1. SORAFENIB (RAF KINASE INHIBITOR) [Suspect]
     Indication: METASTATIC RENAL CELL CARCINOMA
     Dosage: UNK UNK, QD
     Dates: start: 20101124, end: 20101206

REACTIONS (4)
  - CIRCULATORY COLLAPSE [None]
  - MUSCULAR WEAKNESS [None]
  - RASH [None]
  - DIZZINESS [None]
